FAERS Safety Report 7611207-4 (Version None)
Quarter: 2011Q3

REPORT INFORMATION
  Report Type: 
  Country: None (occurrence: None)
  Receive Date: 20110715
  Receipt Date: 20110707
  Transmission Date: 20111222
  Serious: Yes (Other)
  Sender: FDA-Public Use
  Company Number: SE-SANOFI-AVENTIS-2011SA043008

PATIENT
  Sex: Male

DRUGS (2)
  1. JEVTANA KIT [Suspect]
     Route: 042
  2. JEVTANA KIT [Suspect]
     Route: 042

REACTIONS (5)
  - DIARRHOEA [None]
  - INTESTINAL HAEMORRHAGE [None]
  - HAEMORRHAGE URINARY TRACT [None]
  - NAUSEA [None]
  - MUCOSAL INFLAMMATION [None]
